FAERS Safety Report 6958165-3 (Version None)
Quarter: 2010Q3

REPORT INFORMATION
  Report Type: 
  Country: None (occurrence: None)
  Receive Date: 20100831
  Receipt Date: 20100819
  Transmission Date: 20110219
  Serious: Yes (Other)
  Sender: FDA-Public Use
  Company Number: JP-PFIZER INC-2010104799

PATIENT
  Age: 76 Year
  Sex: Male

DRUGS (1)
  1. ALDACTONE [Suspect]
     Route: 048

REACTIONS (3)
  - BREAST SWELLING [None]
  - BREAST TENDERNESS [None]
  - MASTITIS [None]
